FAERS Safety Report 7642397-5 (Version None)
Quarter: 2011Q3

REPORT INFORMATION
  Report Type: 
  Country: None (occurrence: None)
  Receive Date: 20110728
  Receipt Date: 20101006
  Transmission Date: 20111222
  Serious: No
  Sender: FDA-Public Use
  Company Number: US-MYLANLABS-2010S1011362

PATIENT
  Age: 36 Year
  Sex: Female

DRUGS (2)
  1. LEVOTHYROXINE SODIUM [Suspect]
     Route: 048
     Dates: start: 20100611
  2. LEVOTHYROXINE SODIUM [Suspect]
     Indication: HYPOTHYROIDISM
     Route: 048
     Dates: start: 20100201, end: 20100610

REACTIONS (4)
  - IRRITABILITY [None]
  - DRUG INEFFECTIVE [None]
  - FATIGUE [None]
  - BLOOD THYROID STIMULATING HORMONE DECREASED [None]
